FAERS Safety Report 15043277 (Version 1)
Quarter: 2018Q2

REPORT INFORMATION
  Report Type: Report from Study
  Country: None (occurrence: BR)
  Receive Date: 20180621
  Receipt Date: 20180621
  Transmission Date: 20180711
  Serious: Yes (Hospitalization, Other)
  Sender: FDA-Public Use
  Company Number: BR-ABBVIE-18K-020-2394047-00

PATIENT
  Age: 53 Year
  Sex: Male
  Weight: 79 kg

DRUGS (5)
  1. PARACETAMOL [Concomitant]
     Active Substance: ACETAMINOPHEN
     Indication: HIDRADENITIS
  2. HUMIRA [Suspect]
     Active Substance: ADALIMUMAB
     Indication: HIDRADENITIS
     Dosage: LOADING DOSE WEEK 0
     Route: 058
     Dates: start: 20170718, end: 20170718
  3. HUMIRA [Suspect]
     Active Substance: ADALIMUMAB
     Dosage: LOADING DOSE WEEK 1
     Route: 058
     Dates: start: 20170725, end: 20170725
  4. HUMIRA [Suspect]
     Active Substance: ADALIMUMAB
     Route: 058
     Dates: start: 2017, end: 2017
  5. HUMIRA [Suspect]
     Active Substance: ADALIMUMAB
     Route: 058
     Dates: start: 2017

REACTIONS (5)
  - Skin haemorrhage [Recovered/Resolved]
  - Anaemia [Recovering/Resolving]
  - Hidradenitis [Recovered/Resolved]
  - Pneumonia [Recovered/Resolved]
  - Hidradenitis [Unknown]

NARRATIVE: CASE EVENT DATE: 201708
